FAERS Safety Report 5235462-3 (Version None)
Quarter: 2007Q1

REPORT INFORMATION
  Report Type: 
  Country: None (occurrence: None)
  Receive Date: 20070212
  Receipt Date: 20070201
  Transmission Date: 20070707
  Serious: Yes (Hospitalization, Other)
  Sender: FDA-Public Use
  Company Number: BE-JNJFOC-20061006273

PATIENT
  Age: 71 Year
  Sex: Male
  Weight: 70 kg

DRUGS (8)
  1. INFLIXIMAB [Suspect]
     Dosage: WEEK 6
     Route: 042
  2. INFLIXIMAB [Suspect]
     Dosage: WEEK 2
     Route: 042
  3. INFLIXIMAB [Suspect]
     Indication: RHEUMATOID ARTHRITIS
     Dosage: WEEK 0
     Route: 042
  4. LEFLUNOMIDE [Concomitant]
     Indication: RHEUMATOID ARTHRITIS
     Route: 048
  5. ESOMEPRAZOLE MAGNESIUM [Concomitant]
     Indication: GASTROINTESTINAL DISORDER THERAPY
     Route: 048
  6. IBUPROFEN [Concomitant]
     Indication: PAIN
     Route: 048
  7. VERAPAMIL [Concomitant]
     Indication: HYPERTENSION
     Route: 048
  8. MELOXICAM [Concomitant]
     Indication: PAIN
     Route: 048

REACTIONS (1)
  - OESOPHAGEAL NEOPLASM [None]
